FAERS Safety Report 6838503-2 (Version None)
Quarter: 2010Q3

REPORT INFORMATION
  Report Type: 
  Country: None (occurrence: None)
  Receive Date: 20100713
  Receipt Date: 20070612
  Transmission Date: 20110219
  Serious: No
  Sender: FDA-Public Use
  Company Number: US-PFIZER INC-2007049546

PATIENT
  Sex: Female

DRUGS (4)
  1. CHANTIX [Suspect]
     Indication: SMOKING CESSATION THERAPY
     Route: 048
     Dates: start: 20070607, end: 20070607
  2. MECLIZINE [Concomitant]
  3. PREMARIN [Concomitant]
  4. FLUDROCORTISONE [Concomitant]

REACTIONS (1)
  - NAUSEA [None]
